FAERS Safety Report 13765580 (Version 5)
Quarter: 2018Q3

REPORT INFORMATION
  Report Type: Report from Study
  Country: US (occurrence: US)
  Receive Date: 20170718
  Receipt Date: 20180702
  Transmission Date: 20181010
  Serious: Yes (Hospitalization)
  Sender: FDA-Public Use
  Company Number: US-ACTELION-A-US2015-127047

PATIENT
  Age: 86 Year
  Sex: Female

DRUGS (12)
  1. SILDENAFIL. [Concomitant]
     Active Substance: SILDENAFIL
  2. ALLEGRA [Concomitant]
     Active Substance: FEXOFENADINE HYDROCHLORIDE
  3. PREDNISONE. [Concomitant]
     Active Substance: PREDNISONE
  4. LINZESS [Concomitant]
     Active Substance: LINACLOTIDE
  5. METFORMIN [Concomitant]
     Active Substance: METFORMIN HYDROCHLORIDE
  6. FOSAMAX [Concomitant]
     Active Substance: ALENDRONATE SODIUM
  7. TYVASO [Concomitant]
     Active Substance: TREPROSTINIL
     Dosage: 72 MCG, QID
     Route: 065
     Dates: start: 201504
  8. XANAX [Concomitant]
     Active Substance: ALPRAZOLAM
  9. ALLOPURINOL. [Concomitant]
     Active Substance: ALLOPURINOL
  10. TRACLEER [Suspect]
     Active Substance: BOSENTAN
     Indication: PULMONARY ARTERIAL HYPERTENSION
     Dosage: 125 MG, BID
     Route: 048
     Dates: start: 20100215
  11. PRAMIPEXOLE. [Concomitant]
     Active Substance: PRAMIPEXOLE
  12. PRILOSEC [Concomitant]
     Active Substance: OMEPRAZOLE MAGNESIUM

REACTIONS (8)
  - Throat irritation [Unknown]
  - Back pain [Recovering/Resolving]
  - Dyspepsia [Unknown]
  - Vertebral foraminal stenosis [Recovering/Resolving]
  - Pulmonary arterial pressure increased [Unknown]
  - Candida infection [Unknown]
  - Dyspnoea [Not Recovered/Not Resolved]
  - Neuralgia [Recovering/Resolving]

NARRATIVE: CASE EVENT DATE: 20160713
